FAERS Safety Report 11399465 (Version 6)
Quarter: 2016Q4

REPORT INFORMATION
  Report Type: Report from Study
  Country: US (occurrence: US)
  Receive Date: 20150820
  Receipt Date: 20161025
  Transmission Date: 20170206
  Serious: No
  Sender: FDA-Public Use
  Company Number: PHHY2015US028865

PATIENT
  Age: 49 Year
  Sex: Female

DRUGS (2)
  1. SOLU-MEDROL [Concomitant]
     Active Substance: METHYLPREDNISOLONE SODIUM SUCCINATE
     Indication: MULTIPLE SCLEROSIS RELAPSE
     Dosage: 1000 MG, UNK
     Route: 065
     Dates: start: 20150522, end: 20150524
  2. GILENYA [Suspect]
     Active Substance: FINGOLIMOD HYDROCHLORIDE
     Indication: MULTIPLE SCLEROSIS
     Dosage: UNK, QD
     Route: 048

REACTIONS (17)
  - Lymphocyte count decreased [Recovered/Resolved]
  - Urinary tract infection [Recovered/Resolved]
  - Injection site pruritus [Not Recovered/Not Resolved]
  - Urinary tract infection [Recovered/Resolved]
  - Upper respiratory tract infection [Recovered/Resolved]
  - Urinary tract infection [Recovered/Resolved]
  - Paraesthesia [Not Recovered/Not Resolved]
  - Leukopenia [Recovered/Resolved]
  - Fatigue [Not Recovered/Not Resolved]
  - Anxiety [Recovered/Resolved]
  - Acrochordon [Not Recovered/Not Resolved]
  - Dyspnoea [Recovered/Resolved]
  - Injection site erythema [Not Recovered/Not Resolved]
  - Foot fracture [Recovered/Resolved]
  - Telangiectasia [Not Recovered/Not Resolved]
  - Myxoid cyst [Not Recovered/Not Resolved]
  - Asthenia [Not Recovered/Not Resolved]

NARRATIVE: CASE EVENT DATE: 20141219
